FAERS Safety Report 19176546 (Version 1)
Quarter: 2021Q2

REPORT INFORMATION
  Report Type: Other
  Country: US (occurrence: US)
  Receive Date: 20210423
  Receipt Date: 20210423
  Transmission Date: 20210717
  Serious: Yes (Hospitalization)
  Sender: FDA-Public Use
  Company Number: US-B.BRAUN MEDICAL INC.-2109738

PATIENT
  Age: 45 Year
  Sex: Male

DRUGS (1)
  1. 20% MANNITOL INJECTION USP 0264?7578?10 0264?7578?20 [Suspect]
     Active Substance: MANNITOL
     Indication: INTRAOCULAR PRESSURE TEST
     Route: 042

REACTIONS (1)
  - Drug ineffective [None]
